FAERS Safety Report 9703006 (Version 2)
Quarter: 2013Q4

REPORT INFORMATION
  Report Type: Report from Study
  Country: IL (occurrence: IL)
  Receive Date: 20131122
  Receipt Date: 20131206
  Transmission Date: 20140711
  Serious: Yes (Life-Threatening, Hospitalization)
  Sender: FDA-Public Use
  Company Number: IL-ROCHE-1305866

PATIENT
  Age: 79 Year
  Sex: Female

DRUGS (18)
  1. RITUXIMAB [Suspect]
     Indication: PEMPHIGUS
     Route: 042
     Dates: start: 20131115, end: 20131115
  2. PREDNISONE [Concomitant]
     Indication: PEMPHIGUS
     Route: 048
  3. TARGIN [Concomitant]
     Indication: PAIN
     Route: 048
  4. NEXIUM [Concomitant]
     Indication: GASTROOESOPHAGEAL REFLUX DISEASE
     Route: 048
  5. NYSTATIN [Concomitant]
     Indication: ORAL CANDIDIASIS
     Route: 048
  6. CARDILOC [Concomitant]
     Indication: TACHYCARDIA
     Route: 048
  7. RIFAMYCIN [Concomitant]
     Indication: LATENT TUBERCULOSIS
     Route: 048
  8. CLEXANE [Concomitant]
     Indication: PULMONARY EMBOLISM
     Route: 058
  9. ROCEPHIN [Concomitant]
     Indication: INFECTION
  10. CIPRO [Concomitant]
     Indication: INFECTION
     Route: 048
  11. VASODIP [Concomitant]
     Route: 048
  12. HYDROCORTISONE [Concomitant]
     Indication: PEMPHIGUS
     Route: 042
  13. HYDROCORTISONE [Concomitant]
     Route: 042
  14. SLOW-K [Concomitant]
     Indication: HYPOKALAEMIA
     Route: 048
  15. ENDOXAN [Concomitant]
  16. CAPTOPRIL [Concomitant]
     Indication: HYPERTENSION
     Route: 049
  17. RESPRIM [Concomitant]
     Route: 042
  18. LYTEERS [Concomitant]
     Indication: DRY EYE
     Route: 047

REACTIONS (2)
  - Cardiac disorder [Recovering/Resolving]
  - Bronchospasm [Recovered/Resolved]
